FAERS Safety Report 20906951 (Version 1)
Quarter: 2022Q2

REPORT INFORMATION
  Report Type: Spontaneous
  Country: DE (occurrence: DE)
  Receive Date: 20220602
  Receipt Date: 20220602
  Transmission Date: 20220720
  Serious: Yes (Hospitalization)
  Sender: FDA-Public Use
  Company Number: DE-JNJFOC-20220556630

PATIENT
  Age: 18 Year
  Sex: Female

DRUGS (2)
  1. TOPAMAX [Suspect]
     Active Substance: TOPIRAMATE
     Indication: Migraine prophylaxis
     Dosage: INITIALLY 25MG AND POSSIBLY MORE THEREAFTER
     Route: 048
     Dates: start: 202201
  2. TOPAMAX [Suspect]
     Active Substance: TOPIRAMATE
     Dosage: POSSIBLY MORE
     Route: 048

REACTIONS (5)
  - Vomiting [Not Recovered/Not Resolved]
  - Personality change [Not Recovered/Not Resolved]
  - Weight decreased [Not Recovered/Not Resolved]
  - Fatigue [Not Recovered/Not Resolved]
  - Hypersensitivity [Unknown]
